FAERS Safety Report 7281332-9 (Version None)
Quarter: 2011Q1

REPORT INFORMATION
  Report Type: 
  Country: None (occurrence: None)
  Receive Date: 20110208
  Receipt Date: 20110203
  Transmission Date: 20110831
  Serious: Yes (Hospitalization, Other)
  Sender: FDA-Public Use
  Company Number: US-PFIZER INC-2010124839

PATIENT
  Sex: Female

DRUGS (3)
  1. HYDROCODONE [Concomitant]
     Indication: PAIN
     Dosage: UNK
     Dates: start: 20010101
  2. CHANTIX [Suspect]
     Indication: SMOKING CESSATION THERAPY
     Dosage: 0.5/1MG
     Dates: start: 20081001, end: 20081101
  3. ULTRAM [Concomitant]
     Indication: PAIN
     Dosage: UNK
     Dates: start: 20010101

REACTIONS (7)
  - AMNESIA [None]
  - COGNITIVE DISORDER [None]
  - FALL [None]
  - DEPRESSION [None]
  - LOSS OF CONSCIOUSNESS [None]
  - ASTHENIA [None]
  - HEAD INJURY [None]
